FAERS Safety Report 8385729 (Version 3)
Quarter: 2012Q4

REPORT INFORMATION
  Report Type: 
  Country: HU (occurrence: HU)
  Receive Date: 20120202
  Receipt Date: 20121015
  Transmission Date: 20130627
  Serious: Yes (Death)
  Sender: FDA-Public Use
  Company Number: HU-GENZYME-CERZ-1002378

PATIENT
  Sex: Male

DRUGS (4)
  1. CEREZYME [Suspect]
     Indication: GAUCHER^S DISEASE
     Dosage: 9600 U, q4w
     Route: 042
     Dates: start: 2011
  2. CEREZYME [Suspect]
     Dosage: 8000 U, q4w
     Route: 042
     Dates: start: 2010, end: 2011
  3. CEREZYME [Suspect]
     Dosage: UNK
     Dates: start: 2002
  4. CLINDAMYCIN [Concomitant]
     Indication: PRODUCT USED FOR UNKNOWN INDICATION
     Dosage: 600 mg, UNK
     Route: 065

REACTIONS (5)
  - Right ventricular failure [Fatal]
  - Circulatory collapse [Fatal]
  - Hepatic failure [Fatal]
  - Swelling [Unknown]
  - Pyrexia [Unknown]
